FAERS Safety Report 24217573 (Version 2)
Quarter: 2025Q1

REPORT INFORMATION
  Report Type: Spontaneous
  Country: US (occurrence: US)
  Receive Date: 20240816
  Receipt Date: 20250218
  Transmission Date: 20250409
  Serious: No
  Sender: ABBVIE
  Company Number: US-ABBVIE-5881651

PATIENT
  Age: 34 Year
  Sex: Female
  Weight: 102 kg

DRUGS (1)
  1. UBRELVY [Suspect]
     Active Substance: UBROGEPANT
     Indication: Migraine
     Dosage: FORM STRENGTH 100 MILLIGRAM, FREQUENCY ONE IN ONCE
     Route: 048
     Dates: start: 20240725, end: 202408

REACTIONS (4)
  - Papule [Unknown]
  - Lymphadenitis [Recovered/Resolved]
  - Lymph node pain [Recovered/Resolved]
  - Lymph node palpable [Recovered/Resolved]

NARRATIVE: CASE EVENT DATE: 20240725
